FAERS Safety Report 5063631-4 (Version None)
Quarter: 2006Q3

REPORT INFORMATION
  Report Type: 
  Country: None (occurrence: None)
  Receive Date: 20060724
  Receipt Date: 20060606
  Transmission Date: 20061208
  Serious: Yes (Hospitalization)
  Sender: FDA-Public Use
  Company Number: 000#8#2006-00244

PATIENT
  Age: 53 Year
  Sex: Male

DRUGS (1)
  1. ALPROSTADIL (ED) (ALPROSTADIL (ED)) [Suspect]
     Indication: SEXUAL DYSFUNCTION
     Dosage: 15 MCG INTRACAVERNOUS
     Route: 017

REACTIONS (8)
  - BACTEROIDES INFECTION [None]
  - BODY TEMPERATURE INCREASED [None]
  - LEUKOCYTOSIS [None]
  - PENILE ABSCESS [None]
  - PEYRONIE'S DISEASE [None]
  - SCAR [None]
  - SELF-MEDICATION [None]
  - TACHYCARDIA [None]
